FAERS Safety Report 9123533 (Version 1)
Quarter: 2013Q1

REPORT INFORMATION
  Report Type: Spontaneous
  Country: US (occurrence: US)
  Receive Date: 20130115
  Receipt Date: 20130115
  Transmission Date: 20140127
  Serious: No
  Sender: FDA-Public Use
  Company Number: US-BAYER-2013-003640

PATIENT
  Age: 63 Year
  Sex: Male

DRUGS (10)
  1. STAXYN (FDT/ODT) [Suspect]
     Indication: ERECTILE DYSFUNCTION
     Dosage: 10 MG, ONCE
     Route: 048
     Dates: start: 20130105, end: 20130105
  2. REMERON [Concomitant]
  3. LUNESTA [Concomitant]
  4. LIPITOR [Concomitant]
  5. LISINOPRIL [Concomitant]
  6. ASPIRIN [Concomitant]
  7. LOVAZA [Concomitant]
  8. CENTRUM SILVER [Concomitant]
  9. ALPRAZOLAM [Concomitant]
  10. METFORMIN W/SITAGLIPTIN [Concomitant]

REACTIONS (1)
  - Ejaculation failure [None]
